FAERS Safety Report 17126111 (Version 2)
Quarter: 2020Q1

REPORT INFORMATION
  Report Type: Other
  Country: DE (occurrence: DE)
  Receive Date: 20191209
  Receipt Date: 20200324
  Transmission Date: 20200409
  Serious: No
  Sender: FDA-Public Use
  Company Number: DE-LUPIN PHARMACEUTICALS INC.-2019-06422

PATIENT
  Age: 3 Year
  Sex: Male
  Weight: 15 kg

DRUGS (1)
  1. SERTRALINE HYDROCHLORIDE TABLETS [Suspect]
     Active Substance: SERTRALINE HYDROCHLORIDE
     Indication: PRODUCT USED FOR UNKNOWN INDICATION
     Dosage: 150 MILLIGRAM, UNK
     Route: 048
     Dates: start: 20181228, end: 20181228

REACTIONS (3)
  - No adverse event [Unknown]
  - Accidental exposure to product by child [Unknown]
  - Product administration error [Unknown]

NARRATIVE: CASE EVENT DATE: 20181228
